FAERS Safety Report 5551537-3 (Version None)
Quarter: 2007Q4

REPORT INFORMATION
  Report Type: 
  Country: None (occurrence: None)
  Receive Date: 20071129
  Receipt Date: 20070724
  Transmission Date: 20080405
  Serious: Yes (Hospitalization)
  Sender: FDA-Public Use
  Company Number: US200703002013

PATIENT
  Age: 40 Year
  Sex: Male
  Weight: 87.5 kg

DRUGS (9)
  1. ZYPREXA [Suspect]
     Dosage: 30 MG
     Dates: start: 19960101, end: 19971101
  2. ZYPREXA [Suspect]
     Dosage: 30 MG
     Dates: start: 19971201, end: 20060301
  3. ABILIFY [Concomitant]
  4. RISPERDAL [Concomitant]
  5. GEODON [Concomitant]
  6. THORAZINE [Concomitant]
  7. HALDOL           (HALOPERIDOL DECANOATE) [Concomitant]
  8. PROZAC [Concomitant]
  9. MICROZIDE [Concomitant]

REACTIONS (5)
  - GLUCOSE URINE PRESENT [None]
  - HYPOGLYCAEMIA [None]
  - METABOLIC DISORDER [None]
  - OVERDOSE [None]
  - TYPE 2 DIABETES MELLITUS [None]
